FAERS Safety Report 4716863-6 (Version None)
Quarter: 2005Q3

REPORT INFORMATION
  Report Type: 
  Country: None (occurrence: None)
  Receive Date: 20050719
  Receipt Date: 20050310
  Transmission Date: 20060218
  Serious: Yes (Hospitalization, Other)
  Sender: FDA-Public Use
  Company Number: US-MERCK-0503USA02331

PATIENT
  Age: 65 Year
  Sex: Female
  Weight: 87 kg

DRUGS (1)
  1. VIOXX [Suspect]
     Indication: ARTHRITIS
     Route: 048
     Dates: start: 19991201

REACTIONS (12)
  - ARTHRALGIA [None]
  - CORONARY ARTERY DISEASE [None]
  - EXOSTOSIS [None]
  - GASTRIC DISORDER [None]
  - HEADACHE [None]
  - KNEE ARTHROPLASTY [None]
  - MONARTHRITIS [None]
  - MYOCARDIAL INFARCTION [None]
  - OSTEOARTHRITIS [None]
  - RASH [None]
  - SHOULDER ARTHROPLASTY [None]
  - THROMBOSIS PROPHYLAXIS [None]
